FAERS Safety Report 8398374-2 (Version None)
Quarter: 2012Q2

REPORT INFORMATION
  Report Type: 
  Country: None (occurrence: None)
  Receive Date: 20120531
  Receipt Date: 20120524
  Transmission Date: 20120825
  Serious: Yes (Other)
  Sender: FDA-Public Use
  Company Number: CA-PFIZER INC-2012126163

PATIENT
  Sex: Male

DRUGS (2)
  1. VIAGRA [Suspect]
     Dosage: 100 MG, UNK
     Dates: start: 20120519
  2. VIAGRA [Suspect]
     Dosage: 100 MG, UNK
     Dates: start: 20120524

REACTIONS (3)
  - LOSS OF CONSCIOUSNESS [None]
  - HYPERHIDROSIS [None]
  - CARDIAC DISORDER [None]
